FAERS Safety Report 19548264 (Version 1)
Quarter: 2021Q3

REPORT INFORMATION
  Report Type: Spontaneous
  Country: US (occurrence: US)
  Receive Date: 20210715
  Receipt Date: 20210715
  Transmission Date: 20211014
  Serious: No
  Sender: FDA-Public Use
  Company Number: US-CIPLA LTD.-2021US04402

PATIENT

DRUGS (5)
  1. DOLUTEGRAVIR [Suspect]
     Active Substance: DOLUTEGRAVIR
     Indication: ANTIRETROVIRAL THERAPY
     Dosage: UNK, AT A TOTAL DAILY DOSE OF 1 UPTO 6TH WEEK OF FIRST TRIMESTER (COURSE 1)
     Route: 048
  2. EMTRICITABINE/TENOFOVIR [Suspect]
     Active Substance: EMTRICITABINE\TENOFOVIR
     Indication: ANTIRETROVIRAL THERAPY
     Dosage: UNK, AT A TOTAL DAILY DOSE OF 1, FROM THE 7TH WEEK OF FIRST TRIMESTER (COURSE 1)
     Route: 048
  3. RITONAVIR. [Suspect]
     Active Substance: RITONAVIR
     Indication: ANTIRETROVIRAL THERAPY
     Dosage: UNK, AT A TOTAL DAILY DOSE OF 1, FROM 7TH WEEK OF FIRST TRIMESTER (COURSE 1)
     Route: 048
  4. EMTRICITABINE;TENOFOVIR ALAFENAMIDE [Suspect]
     Active Substance: EMTRICITABINE\TENOFOVIR
     Indication: ANTIRETROVIRAL THERAPY
     Dosage: UNK, AT A TOTAL DAILY DOSE OF 1 UPTO 6TH WEEK OF FIRST TRIMESTER (COURSE 1)
     Route: 048
  5. ATAZANAVIR. [Suspect]
     Active Substance: ATAZANAVIR
     Indication: ANTIRETROVIRAL THERAPY
     Dosage: UNK, AT A TOTAL DAILY DOSE OF 1, FROM 7TH WEEK OF FIRST TRIMESTER (COURSE 1)
     Route: 048

REACTIONS (2)
  - Exposure during pregnancy [Unknown]
  - No adverse event [Unknown]
